FAERS Safety Report 25614745 (Version 1)
Quarter: 2025Q3

REPORT INFORMATION
  Report Type: Spontaneous
  Country: JP (occurrence: JP)
  Receive Date: 20250729
  Receipt Date: 20250729
  Transmission Date: 20251021
  Serious: Yes (Hospitalization)
  Sender: CHEPLAPHARM
  Company Number: JP-CHEPLA-2025009010

PATIENT
  Age: 58 Year
  Sex: Female

DRUGS (3)
  1. OLANZAPINE [Suspect]
     Active Substance: OLANZAPINE
     Indication: Schizophrenia
     Dosage: DAILY DOSE: 12.5 MILLIGRAM
     Route: 048
  2. LEVOMEPROMAZINE [Suspect]
     Active Substance: LEVOMEPROMAZINE
     Indication: Schizophrenia
  3. NITRAZEPAM [Suspect]
     Active Substance: NITRAZEPAM
     Indication: Insomnia

REACTIONS (7)
  - Diabetic ketoacidosis [Recovered/Resolved]
  - Urinary retention [Recovered/Resolved]
  - Urethritis [Recovered/Resolved]
  - Gait disturbance [Unknown]
  - Fall [Unknown]
  - Hypoaesthesia [Unknown]
  - Contusion [Unknown]
